FAERS Safety Report 25013839 (Version 1)
Quarter: 2025Q1

REPORT INFORMATION
  Report Type: Other
  Country: DE (occurrence: DE)
  Receive Date: 20250226
  Receipt Date: 20250226
  Transmission Date: 20250408
  Serious: No
  Sender: TOLMAR
  Company Number: None

PATIENT
  Sex: Male

DRUGS (2)
  1. ELIGARD [Suspect]
     Active Substance: LEUPROLIDE ACETATE
     Indication: Product used for unknown indication
  2. ELIGARD [Suspect]
     Active Substance: LEUPROLIDE ACETATE
     Indication: Product used for unknown indication

REACTIONS (8)
  - Gait disturbance [Unknown]
  - Posture abnormal [Unknown]
  - Exercise tolerance decreased [Unknown]
  - Muscular weakness [Unknown]
  - Dyspnoea [Unknown]
  - Muscle spasms [Unknown]
  - Weight increased [Unknown]
  - Injection site discomfort [Unknown]
